FAERS Safety Report 6664016-7 (Version None)
Quarter: 2010Q2

REPORT INFORMATION
  Report Type: 
  Country: None (occurrence: None)
  Receive Date: 20100401
  Receipt Date: 20100324
  Transmission Date: 20101027
  Serious: Yes (Other)
  Sender: FDA-Public Use
  Company Number: US-SANOFI-AVENTIS-2010SA018324

PATIENT
  Age: 69 Year
  Sex: Male

DRUGS (3)
  1. PLAVIX [Suspect]
     Route: 048
     Dates: start: 20031101
  2. PLAVIX [Suspect]
     Route: 048
     Dates: start: 20031101
  3. SIMVASTATIN [Concomitant]
     Dates: start: 20031101

REACTIONS (4)
  - BLISTER [None]
  - COLONIC POLYP [None]
  - CONTUSION [None]
  - RASH PRURITIC [None]
